FAERS Safety Report 14586080 (Version 1)
Quarter: 2018Q1

REPORT INFORMATION
  Report Type: Spontaneous
  Country: US (occurrence: US)
  Receive Date: 20180301
  Receipt Date: 20180301
  Transmission Date: 20180509
  Serious: Yes (Other)
  Sender: FDA-Public Use
  Company Number: US-TEVA-768312USA

PATIENT
  Age: 63 Year
  Sex: Female

DRUGS (2)
  1. LODINE [Suspect]
     Active Substance: ETODOLAC
  2. ETODOLAC. [Suspect]
     Active Substance: ETODOLAC
     Route: 065

REACTIONS (1)
  - Anaphylactic reaction [Recovered/Resolved]

NARRATIVE: CASE EVENT DATE: 20130117
